FAERS Safety Report 4344719-X (Version None)
Quarter: 2004Q2

REPORT INFORMATION
  Report Type: 
  Country: None (occurrence: None)
  Receive Date: 20040420
  Receipt Date: 20040409
  Transmission Date: 20050107
  Serious: Yes (Hospitalization)
  Sender: FDA-Public Use
  Company Number: 2004208649NL

PATIENT
  Age: 51 Year
  Sex: Male

DRUGS (4)
  1. CAMPTOSAR [Suspect]
     Indication: COLORECTAL CANCER METASTATIC
     Dosage: 450 MG, IV
     Route: 042
     Dates: start: 20031024, end: 20031024
  2. CAPECITABINE(CAPECITABINE) [Suspect]
     Indication: COLORECTAL CANCER METASTATIC
     Dosage: 1800 MG, BID, ORAL
     Route: 048
     Dates: start: 20031024, end: 20031029
  3. OXAZEPAM [Concomitant]
  4. PANTOPRAZOLE [Concomitant]

REACTIONS (3)
  - HYDRONEPHROSIS [None]
  - ILEUS PARALYTIC [None]
  - RENAL FAILURE [None]
